FAERS Safety Report 24416327 (Version 2)
Quarter: 2024Q4

REPORT INFORMATION
  Report Type: Spontaneous
  Country: BR (occurrence: BR)
  Receive Date: 20241009
  Receipt Date: 20241011
  Transmission Date: 20250115
  Serious: Yes (Hospitalization, Other)
  Sender: PFIZER
  Company Number: BR-PFIZER INC-202400232166

PATIENT
  Age: 14 Year
  Sex: Female
  Weight: 50 kg

DRUGS (4)
  1. CIBINQO [Suspect]
     Active Substance: ABROCITINIB
     Indication: Dermatitis atopic
     Dosage: 200 MG, 1X/DAY
     Route: 048
     Dates: start: 20240806, end: 20240806
  2. CIBINQO [Suspect]
     Active Substance: ABROCITINIB
     Dosage: 100 MG
     Dates: start: 20240812
  3. BUDESONIDE [Concomitant]
     Active Substance: BUDESONIDE
     Indication: Rhinitis allergic
     Dosage: 50 UG, 2X/DAY
     Route: 045
  4. BETAMETHASONE VALERATE\FUSIDIC ACID [Concomitant]
     Active Substance: BETAMETHASONE VALERATE\FUSIDIC ACID
     Indication: Dermatitis atopic
     Dosage: 2 APPLICATIONS

REACTIONS (7)
  - Vomiting [Recovered/Resolved]
  - Pallor [Recovering/Resolving]
  - Dizziness [Recovering/Resolving]
  - Abdominal pain upper [Unknown]
  - Somnolence [Unknown]
  - Influenza [Unknown]
  - Weight decreased [Unknown]

NARRATIVE: CASE EVENT DATE: 20240806
